FAERS Safety Report 25322515 (Version 3)
Quarter: 2025Q2

REPORT INFORMATION
  Report Type: Spontaneous
  Country: US (occurrence: US)
  Receive Date: 20250516
  Receipt Date: 20250630
  Transmission Date: 20250716
  Serious: No
  Sender: LUPIN
  Company Number: US-LUPIN PHARMACEUTICALS INC.-2025-04125

PATIENT
  Age: 50 Year
  Weight: 81.633 kg

DRUGS (1)
  1. CEPHALEXIN [Suspect]
     Active Substance: CEPHALEXIN
     Indication: Infection
     Route: 065

REACTIONS (8)
  - Headache [Unknown]
  - Dizziness [Unknown]
  - Malaise [Unknown]
  - Infection [Unknown]
  - Wrong technique in product usage process [Unknown]
  - Product taste abnormal [Unknown]
  - Product quality issue [Unknown]
  - Product packaging quantity issue [Unknown]
